FAERS Safety Report 7349253-0 (Version None)
Quarter: 2011Q1

REPORT INFORMATION
  Report Type: 
  Country: None (occurrence: None)
  Receive Date: 20110303
  Receipt Date: 20110219
  Transmission Date: 20110831
  Serious: No
  Sender: FDA-Public Use
  Company Number: 2011-00067

PATIENT
  Age: 74 Year
  Sex: Female

DRUGS (5)
  1. ZICAM COLD REMEDY RAPIDMELTS WITH VITAMIN C [Suspect]
     Dosage: Q 4 HOURS, ON/OFF
     Dates: start: 20110101, end: 20110219
  2. LEVOTHYROXINE SODIUM [Concomitant]
  3. OTHER SUPPLEMENTS [Concomitant]
  4. MULTI-VITAMIN [Concomitant]
  5. ATENOLOL [Concomitant]

REACTIONS (2)
  - AGEUSIA [None]
  - HYPOAESTHESIA ORAL [None]
